FAERS Safety Report 6980310-4 (Version None)
Quarter: 2010Q3

REPORT INFORMATION
  Report Type: 
  Country: None (occurrence: None)
  Receive Date: 20100914
  Receipt Date: 20100906
  Transmission Date: 20110219
  Serious: Yes (Other)
  Sender: FDA-Public Use
  Company Number: GR-ROCHE-725306

PATIENT
  Age: 74 Year
  Sex: Female

DRUGS (6)
  1. BEVACIZUMAB [Suspect]
     Route: 065
  2. BEVACIZUMAB [Suspect]
     Route: 065
  3. PACLITAXEL [Suspect]
     Route: 065
  4. PACLITAXEL [Suspect]
     Route: 065
  5. CANDESARTAN CILEXETIL [Concomitant]
     Indication: HYPERTENSION
  6. AMLODIPINE [Concomitant]
     Indication: HYPERTENSION

REACTIONS (3)
  - BLOOD CREATININE INCREASED [None]
  - OEDEMA [None]
  - PROTEINURIA [None]
